FAERS Safety Report 25861934 (Version 1)
Quarter: 2025Q3

REPORT INFORMATION
  Report Type: Spontaneous
  Country: US (occurrence: US)
  Receive Date: 20250930
  Receipt Date: 20250930
  Transmission Date: 20251021
  Serious: No
  Sender: SANOFI AVENTIS
  Company Number: US-SA-2025SA289891

PATIENT
  Age: 68 Year
  Sex: Male

DRUGS (4)
  1. KEVZARA [Suspect]
     Active Substance: SARILUMAB
     Indication: Rheumatoid arthritis
     Dosage: 200 MG, QOW
     Route: 058
     Dates: start: 202509
  2. KEVZARA [Suspect]
     Active Substance: SARILUMAB
     Indication: Arthropathy
  3. ENTECAVIR [Concomitant]
     Active Substance: ENTECAVIR
  4. ORENCIA [Concomitant]
     Active Substance: ABATACEPT

REACTIONS (2)
  - Pain [Unknown]
  - Product use in unapproved indication [Unknown]

NARRATIVE: CASE EVENT DATE: 20250901
